FAERS Safety Report 11511951 (Version 1)
Quarter: 2015Q3

REPORT INFORMATION
  Report Type: Spontaneous
  Country: US (occurrence: US)
  Receive Date: 20150916
  Receipt Date: 20150916
  Transmission Date: 20151125
  Serious: Yes (Other)
  Sender: FDA-Public Use
  Company Number: US-AMGEN-USASP2015089337

PATIENT
  Age: 72 Year
  Sex: Female

DRUGS (1)
  1. PROLIA [Suspect]
     Active Substance: DENOSUMAB
     Indication: PRODUCT USED FOR UNKNOWN INDICATION
     Dosage: UNK
     Route: 065

REACTIONS (5)
  - Impaired work ability [Not Recovered/Not Resolved]
  - Impaired healing [Not Recovered/Not Resolved]
  - Acne [Not Recovered/Not Resolved]
  - Stomatitis [Not Recovered/Not Resolved]
  - Tibia fracture [Not Recovered/Not Resolved]
